FAERS Safety Report 8142567-6 (Version None)
Quarter: 2012Q1

REPORT INFORMATION
  Report Type: 
  Country: None (occurrence: None)
  Receive Date: 20120216
  Receipt Date: 20120210
  Transmission Date: 20120608
  Serious: Yes (Other)
  Sender: FDA-Public Use
  Company Number: BR-ABBOTT-12P-020-0903539-00

PATIENT
  Sex: Female
  Weight: 67 kg

DRUGS (5)
  1. POLARAMINE [Concomitant]
     Indication: RHINITIS
     Dosage: IN THE EVENING
     Route: 048
  2. DEPAKOTE ER [Suspect]
     Indication: NERVOUS SYSTEM DISORDER
     Route: 048
     Dates: start: 20111001
  3. POLARAMINE [Concomitant]
     Route: 048
  4. DEPAKOTE ER [Suspect]
     Indication: SYNCOPE
  5. DIPYRONE INJ [Concomitant]
     Indication: HEADACHE
     Route: 048

REACTIONS (3)
  - RHINITIS [None]
  - THERAPEUTIC RESPONSE UNEXPECTED [None]
  - SYNCOPE [None]
